FAERS Safety Report 7563191-X (Version None)
Quarter: 2011Q2

REPORT INFORMATION
  Report Type: 
  Country: None (occurrence: None)
  Receive Date: 20110621
  Receipt Date: 20110621
  Transmission Date: 20111010
  Serious: Yes (Other)
  Sender: FDA-Public Use
  Company Number: None

PATIENT
  Age: 65 Year
  Sex: Male
  Weight: 110.6777 kg

DRUGS (1)
  1. BENAZEPRIL HYDROCHLORIDE [Suspect]
     Indication: HYPERTENSION

REACTIONS (4)
  - PRODUCT SUBSTITUTION ISSUE [None]
  - PALPITATIONS [None]
  - ANXIETY [None]
  - ABDOMINAL DISCOMFORT [None]
